FAERS Safety Report 15682981 (Version 1)
Quarter: 2018Q4

REPORT INFORMATION
  Report Type: Spontaneous
  Country: IT (occurrence: IT)
  Receive Date: 20181203
  Receipt Date: 20181203
  Transmission Date: 20190205
  Serious: Yes (Hospitalization)
  Sender: FDA-Public Use
  Company Number: IT-ROCHE-2223581

PATIENT
  Age: 61 Year
  Sex: Female

DRUGS (1)
  1. GAZYVARO [Suspect]
     Active Substance: OBINUTUZUMAB
     Indication: LYMPHOCYTIC LEUKAEMIA
     Route: 041

REACTIONS (3)
  - Hypertransaminasaemia [Recovered/Resolved]
  - Hypoxia [Recovered/Resolved]
  - Chills [Recovered/Resolved]

NARRATIVE: CASE EVENT DATE: 20161105
